FAERS Safety Report 8874579 (Version 1)
Quarter: 2012Q4

REPORT INFORMATION
  Report Type: 
  Country: US (occurrence: US)
  Receive Date: 20121031
  Receipt Date: 20121031
  Transmission Date: 20130627
  Serious: Yes (Death, Other)
  Sender: FDA-Public Use
  Company Number: US-BRISTOL-MYERS SQUIBB COMPANY-17055484

PATIENT
  Age: 32 Year
  Sex: Female

DRUGS (1)
  1. YERVOY [Suspect]
     Dosage: 3 Doses
     Dates: start: 20120704

REACTIONS (3)
  - Death [Fatal]
  - Hyponatraemia [Unknown]
  - Oedema [Unknown]
